FAERS Safety Report 24757339 (Version 1)
Quarter: 2024Q4

REPORT INFORMATION
  Report Type: Spontaneous
  Country: US (occurrence: US)
  Receive Date: 20241220
  Receipt Date: 20241220
  Transmission Date: 20250114
  Serious: Yes (Other)
  Sender: COOPERSURGICAL
  Company Number: US-COOPERSURGICAL, INC.-2024CPS003988

PATIENT
  Age: 28 Year
  Sex: Female
  Weight: 86.168 kg

DRUGS (1)
  1. PARAGARD T 380A [Suspect]
     Active Substance: COPPER
     Indication: Contraception
     Dosage: UNK
     Route: 015
     Dates: start: 20090130

REACTIONS (20)
  - Reproductive complication associated with device [Not Recovered/Not Resolved]
  - Mammoplasty [Recovered/Resolved]
  - High risk pregnancy [Recovered/Resolved]
  - Device breakage [Not Recovered/Not Resolved]
  - Foreign body in reproductive tract [Not Recovered/Not Resolved]
  - Complication of device removal [Not Recovered/Not Resolved]
  - Embedded device [Not Recovered/Not Resolved]
  - Fear [Not Recovered/Not Resolved]
  - Neck injury [Unknown]
  - Limb injury [Unknown]
  - Accident at work [Unknown]
  - Hypertension [Unknown]
  - Migraine [Unknown]
  - Obesity [Unknown]
  - Endometriosis [Unknown]
  - Depression [Unknown]
  - Gastrointestinal disorder [Unknown]
  - Loss of personal independence in daily activities [Not Recovered/Not Resolved]
  - Device expulsion [Recovered/Resolved]
  - Pain [Not Recovered/Not Resolved]

NARRATIVE: CASE EVENT DATE: 20100501
